FAERS Safety Report 10785562 (Version 1)
Quarter: 2015Q1

REPORT INFORMATION
  Report Type: Spontaneous
  Country: AU (occurrence: None)
  Receive Date: 20150209
  Receipt Date: 20150209
  Transmission Date: 20150721
  Serious: Yes (Hospitalization, Other)
  Sender: FDA-Public Use
  Company Number: 2014FE02996

PATIENT
  Age: 46 Year
  Sex: Female

DRUGS (1)
  1. PICOPREP [Suspect]
     Active Substance: CITRIC ACID MONOHYDRATE\MAGNESIUM OXIDE\SODIUM PICOSULFATE
     Indication: BOWEL PREPARATION
     Dates: start: 20131216, end: 20131216

REACTIONS (7)
  - Ear canal injury [None]
  - Tooth fracture [None]
  - Fall [None]
  - Retrograde amnesia [None]
  - Nausea [None]
  - Jaw fracture [None]
  - Circulatory collapse [None]

NARRATIVE: CASE EVENT DATE: 20131217
